FAERS Safety Report 15288716 (Version 1)
Quarter: 2018Q3

REPORT INFORMATION
  Report Type: Spontaneous
  Country: US (occurrence: US)
  Receive Date: 20180802
  Receipt Date: 20180802
  Transmission Date: 20181010
  Serious: Yes (Death, Life-Threatening, Hospitalization, Disabling)
  Sender: FDA-Public Use
  Company Number: None

PATIENT
  Age: 82 Year
  Sex: Male
  Weight: 99.79 kg

DRUGS (35)
  1. BETA BLOCKERS/ACE INHIBITORS [Concomitant]
  2. ALEVE [Concomitant]
     Active Substance: NAPROXEN SODIUM
  3. CLOPIDOGREL [Concomitant]
     Active Substance: CLOPIDOGREL BISULFATE
  4. POTASSIUM [Concomitant]
     Active Substance: POTASSIUM
  5. CASADEX [Concomitant]
  6. PROTONIX [Concomitant]
     Active Substance: PANTOPRAZOLE SODIUM
  7. PERCOCET [Concomitant]
     Active Substance: ACETAMINOPHEN\OXYCODONE HYDROCHLORIDE
  8. LORAZEPAM. [Concomitant]
     Active Substance: LORAZEPAM
  9. LOPRESSOR [Concomitant]
     Active Substance: METOPROLOL TARTRATE
  10. WARFARIN [Concomitant]
     Active Substance: WARFARIN
  11. LIPITOR [Concomitant]
     Active Substance: ATORVASTATIN CALCIUM
  12. HEPARIN [Concomitant]
     Active Substance: HEPARIN SODIUM
  13. ABIRATERONE/ENZALUTAMIDE [Concomitant]
  14. VICODIN [Concomitant]
     Active Substance: ACETAMINOPHEN\HYDROCODONE BITARTRATE
  15. REMORAU (MIRTAZAPINE) [Concomitant]
  16. ZOFRAN [Concomitant]
     Active Substance: ONDANSETRON HYDROCHLORIDE
  17. LOVENOX [Concomitant]
     Active Substance: ENOXAPARIN SODIUM
  18. CHANTIX [Concomitant]
     Active Substance: VARENICLINE TARTRATE
  19. LUPRON [Concomitant]
     Active Substance: LEUPROLIDE ACETATE
  20. MORPHINE [Suspect]
     Active Substance: MORPHINE
     Indication: PROSTATE CANCER
  21. ASA [Concomitant]
     Active Substance: ASPIRIN
  22. BICALUTAMIDE. [Concomitant]
     Active Substance: BICALUTAMIDE
  23. PLAVIX [Concomitant]
     Active Substance: CLOPIDOGREL BISULFATE
  24. ASTROPINE SULFATE [Concomitant]
  25. NITROGLYCERIN. [Concomitant]
     Active Substance: NITROGLYCERIN
  26. ASPIRIN 81 MG [Concomitant]
     Active Substance: ASPIRIN
  27. COUMADIN [Concomitant]
     Active Substance: WARFARIN SODIUM
  28. TRAMADOL. [Concomitant]
     Active Substance: TRAMADOL
  29. VIAGRA [Concomitant]
     Active Substance: SILDENAFIL CITRATE
  30. TYLENOL [Concomitant]
     Active Substance: ACETAMINOPHEN
  31. RAMIPRIL. [Concomitant]
     Active Substance: RAMIPRIL
  32. ATORVASTATIN [Concomitant]
     Active Substance: ATORVASTATIN
  33. ATENOLOL. [Concomitant]
     Active Substance: ATENOLOL
  34. ESTROPIPATE/ESTROVAN (FOR WOMEN ONLY) [Concomitant]
  35. CEPHALEXIN. [Concomitant]
     Active Substance: CEPHALEXIN

REACTIONS (2)
  - Radiation injury [None]
  - Intentional product misuse [None]

NARRATIVE: CASE EVENT DATE: 20180115
